FAERS Safety Report 5904720-9 (Version None)
Quarter: 2008Q3

REPORT INFORMATION
  Report Type: 
  Country: None (occurrence: None)
  Receive Date: 20080909
  Receipt Date: 20080319
  Transmission Date: 20090109
  Serious: Yes (Other)
  Sender: FDA-Public Use
  Company Number: 163-20785-08031287

PATIENT
  Age: 72 Year
  Sex: Male

DRUGS (1)
  1. THALOMID [Suspect]
     Indication: MULTIPLE MYELOMA
     Dosage: 50 MG, 1 IN 1 D, ORAL
     Route: 048
     Dates: start: 20060516, end: 20061001

REACTIONS (4)
  - BLOOD IMMUNOGLOBULIN G INCREASED [None]
  - DEEP VEIN THROMBOSIS [None]
  - MONOCLONAL IMMUNOGLOBULIN PRESENT [None]
  - PLATELET COUNT DECREASED [None]
